FAERS Safety Report 14532079 (Version 2)
Quarter: 2022Q3

REPORT INFORMATION
  Report Type: Spontaneous
  Country: US (occurrence: US)
  Receive Date: 20180214
  Receipt Date: 20220721
  Transmission Date: 20221027
  Serious: Yes (Other)
  Sender: FDA-Public Use
  Company Number: US-SUNOVION-2018SUN000519

PATIENT
  Age: 32 Year
  Sex: Female

DRUGS (12)
  1. LATUDA [Suspect]
     Active Substance: LURASIDONE HYDROCHLORIDE
     Indication: Bipolar disorder
     Dosage: 20 MG, UNK
     Route: 048
     Dates: start: 201801
  2. LATUDA [Suspect]
     Active Substance: LURASIDONE HYDROCHLORIDE
     Indication: Major depression
     Dosage: 20 MG, UNK
     Route: 048
     Dates: start: 201711, end: 20171124
  3. LATUDA [Suspect]
     Active Substance: LURASIDONE HYDROCHLORIDE
     Dosage: 40 MG, UNK
     Route: 048
     Dates: start: 201711, end: 201711
  4. LATUDA [Suspect]
     Active Substance: LURASIDONE HYDROCHLORIDE
     Dosage: 20 MG, UNK
     Route: 048
     Dates: start: 20171026, end: 201711
  5. OLANZAPINE [Suspect]
     Active Substance: OLANZAPINE
     Dosage: UNK
     Route: 065
  6. LAMICTAL [Concomitant]
     Active Substance: LAMOTRIGINE
     Dosage: UNK
  7. LITHIUM [Concomitant]
     Active Substance: LITHIUM
     Dosage: UNK
  8. GABAPENTIN [Concomitant]
     Active Substance: GABAPENTIN
     Dosage: UNK
  9. HALCION [Concomitant]
     Active Substance: TRIAZOLAM
     Dosage: UNK
  10. TRILEPTAL [Concomitant]
     Active Substance: OXCARBAZEPINE
     Dosage: UNK
  11. LEVOTHYROXINE [Concomitant]
     Active Substance: LEVOTHYROXINE
     Dosage: UNK
  12. MINOCYCLINE [Concomitant]
     Active Substance: MINOCYCLINE HYDROCHLORIDE
     Indication: Acne
     Dosage: UNK

REACTIONS (7)
  - Major depression [Unknown]
  - Withdrawal syndrome [Unknown]
  - Muscular weakness [Not Recovered/Not Resolved]
  - Disturbance in attention [Not Recovered/Not Resolved]
  - Memory impairment [Not Recovered/Not Resolved]
  - Weight increased [Unknown]
  - Off label use [Unknown]

NARRATIVE: CASE EVENT DATE: 20171124
